FAERS Safety Report 23881294 (Version 1)
Quarter: 2024Q2

REPORT INFORMATION
  Report Type: Spontaneous
  Country: AU (occurrence: AU)
  Receive Date: 20240521
  Receipt Date: 20240521
  Transmission Date: 20240716
  Serious: Yes (Other)
  Sender: FDA-Public Use
  Company Number: AU-ANIPHARMA-2024-AU-000249

PATIENT
  Sex: Female

DRUGS (5)
  1. ANASTROZOLE [Suspect]
     Active Substance: ANASTROZOLE
     Indication: Hormone receptor positive HER2 negative breast cancer
  2. ABRAXANE [Suspect]
     Active Substance: PACLITAXEL
  3. EXEMESTANE [Suspect]
     Active Substance: EXEMESTANE
  4. LETROZOLE [Suspect]
     Active Substance: LETROZOLE
  5. ERIBULIN [Suspect]
     Active Substance: ERIBULIN
     Route: 042

REACTIONS (2)
  - Malignant neoplasm progression [Unknown]
  - PIK3CA-activated mutation [Unknown]
